FAERS Safety Report 4648451-4 (Version None)
Quarter: 2005Q2

REPORT INFORMATION
  Report Type: 
  Country: None (occurrence: None)
  Receive Date: 20050429
  Receipt Date: 20050422
  Transmission Date: 20051028
  Serious: Yes (Other)
  Sender: FDA-Public Use
  Company Number: PHEH2005US04676

PATIENT
  Sex: Female

DRUGS (5)
  1. ESTROGEN [Suspect]
     Indication: HORMONE REPLACEMENT THERAPY
  2. PREMPRO [Suspect]
  3. PREMARIN [Suspect]
  4. PROVERA [Suspect]
  5. MPA [Suspect]

REACTIONS (5)
  - BREAST CANCER [None]
  - BREAST OPERATION [None]
  - MASTECTOMY [None]
  - PLASTIC SURGERY [None]
  - SYSTEMIC LUPUS ERYTHEMATOSUS [None]
